FAERS Safety Report 11223359 (Version 1)
Quarter: 2015Q2

REPORT INFORMATION
  Report Type: Spontaneous
  Country: FR (occurrence: FR)
  Receive Date: 20150627
  Receipt Date: 20150627
  Transmission Date: 20150821
  Serious: Yes (Hospitalization, Other)
  Sender: FDA-Public Use
  Company Number: FR-CIPLA LTD.-2015FR05205

PATIENT

DRUGS (3)
  1. OXAZEPAM. [Suspect]
     Active Substance: OXAZEPAM
     Indication: DEPRESSION
     Dosage: 30 MG PER DAY
     Route: 065
  2. OXAZEPAM. [Suspect]
     Active Substance: OXAZEPAM
     Dosage: 200 MG, PER DAY
  3. SERTRALINE [Suspect]
     Active Substance: SERTRALINE HYDROCHLORIDE
     Indication: DEPRESSION
     Dosage: 100 MG/DAY
     Route: 065

REACTIONS (6)
  - Drug ineffective [Unknown]
  - Clavicle fracture [Unknown]
  - Major depression [None]
  - Exposure during pregnancy [Unknown]
  - Lower limb fracture [Unknown]
  - Suicide attempt [Unknown]
